FAERS Safety Report 5233054-3 (Version None)
Quarter: 2007Q1

REPORT INFORMATION
  Report Type: 
  Country: None (occurrence: None)
  Receive Date: 20070207
  Receipt Date: 20070129
  Transmission Date: 20070707
  Serious: Yes (Hospitalization)
  Sender: FDA-Public Use
  Company Number: GB-PFIZER INC-2007008696

PATIENT
  Sex: Male

DRUGS (2)
  1. EPANUTIN [Suspect]
     Indication: TRIGEMINAL NEURALGIA
  2. GABAPENTIN [Concomitant]

REACTIONS (2)
  - BREAKTHROUGH PAIN [None]
  - INADEQUATE ANALGESIA [None]
